FAERS Safety Report 15027796 (Version 1)
Quarter: 2018Q2

REPORT INFORMATION
  Report Type: Spontaneous
  Country: US (occurrence: US)
  Receive Date: 20180619
  Receipt Date: 20180619
  Transmission Date: 20180711
  Serious: No
  Sender: FDA-Public Use
  Company Number: US-PFIZER INC-2018247428

PATIENT
  Age: 53 Year
  Sex: Female
  Weight: 72.12 kg

DRUGS (1)
  1. GABAPENTIN. [Suspect]
     Active Substance: GABAPENTIN
     Indication: SLEEP DISORDER
     Dosage: 2100 MG, DAILY (AT NIGHT)

REACTIONS (5)
  - Product use in unapproved indication [Unknown]
  - Dizziness [Unknown]
  - Dysstasia [Unknown]
  - Balance disorder [Unknown]
  - Fall [Unknown]
